FAERS Safety Report 14267734 (Version 1)
Quarter: 2017Q4

REPORT INFORMATION
  Report Type: Spontaneous
  Country: US (occurrence: None)
  Receive Date: 20171211
  Receipt Date: 20171211
  Transmission Date: 20180321
  Serious: Yes (Other)
  Sender: FDA-Public Use
  Company Number: None

PATIENT
  Age: 86 Year
  Sex: Female
  Weight: 62.14 kg

DRUGS (17)
  1. FOSAMAX [Concomitant]
     Active Substance: ALENDRONATE SODIUM
  2. TRAVATAN [Concomitant]
     Active Substance: TRAVOPROST
  3. CRANBERRY. [Concomitant]
     Active Substance: CRANBERRY
  4. METOPROLOL. [Concomitant]
     Active Substance: METOPROLOL
  5. DOXYCYCLINE. [Concomitant]
     Active Substance: DOXYCYCLINE
  6. ASPIRIN. [Concomitant]
     Active Substance: ASPIRIN
  7. TEMAZEPAM. [Suspect]
     Active Substance: TEMAZEPAM
     Indication: SLEEP DISORDER
     Dosage: 1 PILL/NIGHT AT BEDTIME BY MOUTH
     Route: 048
     Dates: start: 20171102, end: 20171104
  8. TAMOXIFEN [Concomitant]
     Active Substance: TAMOXIFEN
  9. AMILORIDE [Concomitant]
     Active Substance: AMILORIDE
  10. FISH OIL [Concomitant]
     Active Substance: FISH OIL
  11. VIT. D3 [Concomitant]
  12. LEVOTHYROXIN [Concomitant]
     Active Substance: LEVOTHYROXINE
  13. AZOPT [Concomitant]
     Active Substance: BRINZOLAMIDE
  14. RESTASIS [Concomitant]
     Active Substance: CYCLOSPORINE
  15. VIT. B7 [Concomitant]
  16. SIMVISTATIN [Concomitant]
     Active Substance: SIMVASTATIN
  17. CALCIUM [Concomitant]
     Active Substance: CALCIUM

REACTIONS (2)
  - Neck pain [None]
  - Musculoskeletal stiffness [None]

NARRATIVE: CASE EVENT DATE: 20171104
